FAERS Safety Report 21015847 (Version 1)
Quarter: 2022Q2

REPORT INFORMATION
  Report Type: Spontaneous
  Country: US (occurrence: None)
  Receive Date: 20220627
  Receipt Date: 20220627
  Transmission Date: 20220721
  Serious: Yes (Hospitalization)
  Sender: FDA-Public Use
  Company Number: None

PATIENT
  Age: 76 Year
  Sex: Male

DRUGS (1)
  1. APIXABAN [Suspect]
     Active Substance: APIXABAN
     Indication: Atrial fibrillation
     Dosage: FREQUENCY : TWICE A DAY;?
     Route: 048
     Dates: start: 20220526

REACTIONS (9)
  - Atrial fibrillation [None]
  - Rectal haemorrhage [None]
  - Chronic obstructive pulmonary disease [None]
  - Constipation [None]
  - Weight decreased [None]
  - Gastric haemorrhage [None]
  - White blood cell count [None]
  - Haemoglobin decreased [None]
  - Blood albumin [None]

NARRATIVE: CASE EVENT DATE: 20220531
